FAERS Safety Report 4481252-9 (Version None)
Quarter: 2004Q4

REPORT INFORMATION
  Report Type: 
  Country: None (occurrence: None)
  Receive Date: 20040923
  Receipt Date: 20040802
  Transmission Date: 20050328
  Serious: No
  Sender: FDA-Public Use
  Company Number: USA030331428

PATIENT
  Age: 84 Year
  Sex: Female
  Weight: 36 kg

DRUGS (10)
  1. FORTEO [Suspect]
     Indication: OSTEOPOROSIS
     Dosage: 20 UG/L DAY
     Dates: start: 20030308
  2. EVISTA [Suspect]
     Indication: OSTEOPOROSIS
     Dates: start: 20000101, end: 20040101
  3. CALCIUM [Concomitant]
  4. FOSAMAX [Concomitant]
  5. NORVASC [Concomitant]
  6. MULTIVITAMIN [Concomitant]
  7. MAGNESIUM (MAGNESIUM ASPARTATE) [Concomitant]
  8. CALCIUM MAGNESIUM [Concomitant]
  9. TOPROL-XL [Concomitant]
  10. FOSAMAX [Concomitant]

REACTIONS (14)
  - ASTHENIA [None]
  - BODY HEIGHT DECREASED [None]
  - CONSTIPATION [None]
  - FEELING ABNORMAL [None]
  - GAIT DISTURBANCE [None]
  - HAEMORRHAGE [None]
  - INJECTION SITE ERYTHEMA [None]
  - INJECTION SITE HAEMORRHAGE [None]
  - JOINT SWELLING [None]
  - MUSCLE CRAMP [None]
  - SKIN DISCOLOURATION [None]
  - VASODILATATION [None]
  - VISUAL DISTURBANCE [None]
  - WEIGHT DECREASED [None]
